FAERS Safety Report 9278438 (Version 1)
Quarter: 2013Q2

REPORT INFORMATION
  Report Type: Spontaneous
  Country: US (occurrence: None)
  Receive Date: 20130506
  Receipt Date: 20130506
  Transmission Date: 20140414
  Serious: Yes (Other)
  Sender: FDA-Public Use
  Company Number: None

PATIENT
  Age: 34 Year
  Sex: Male
  Weight: 95.26 kg

DRUGS (2)
  1. SULFAMETHOXAZOLE / TRIMETHOPRIM [Suspect]
     Indication: LYMPH GLAND INFECTION
     Dosage: ONE TABLET BY MOUTH
     Route: 048
     Dates: start: 20130415, end: 20130501
  2. SULFAMETHOXAZOLE / TRIMETHOPRIM [Suspect]
     Indication: BACTERIAL INFECTION
     Dosage: ONE TABLET BY MOUTH
     Route: 048
     Dates: start: 20130415, end: 20130501

REACTIONS (5)
  - Depression [None]
  - Urticaria [None]
  - Pruritus [None]
  - Dyspnoea [None]
  - Arthralgia [None]
